FAERS Safety Report 8377756-9 (Version None)
Quarter: 2012Q2

REPORT INFORMATION
  Report Type: 
  Country: None (occurrence: None)
  Receive Date: 20120522
  Receipt Date: 20120521
  Transmission Date: 20120825
  Serious: Yes (Hospitalization)
  Sender: FDA-Public Use
  Company Number: DE-GLAXOSMITHKLINE-D0075661A

PATIENT
  Age: 42 Year
  Sex: Female
  Weight: 81 kg

DRUGS (2)
  1. NARATRIPTAN [Suspect]
     Indication: MIGRAINE
     Dosage: 2.5MG UNKNOWN
     Route: 048
     Dates: start: 20111204, end: 20111205
  2. L-THYROXIN 100 [Concomitant]
     Dosage: 100MCG IN THE MORNING
     Route: 048

REACTIONS (1)
  - SUPRAVENTRICULAR TACHYCARDIA [None]
